FAERS Safety Report 12926327 (Version 1)
Quarter: 2016Q4

REPORT INFORMATION
  Report Type: Spontaneous
  Country: CN (occurrence: CN)
  Receive Date: 20161109
  Receipt Date: 20161109
  Transmission Date: 20170207
  Serious: Yes (Other)
  Sender: FDA-Public Use
  Company Number: CN-BAYER-2016-212903

PATIENT

DRUGS (4)
  1. LOGICAL [VALPROATE MAGNESIUM] [Concomitant]
     Route: 048
  2. NEXAVAR [Suspect]
     Active Substance: SORAFENIB
     Dosage: UNK
     Route: 048
     Dates: start: 20161101
  3. OXCARBAZEPINE. [Concomitant]
     Active Substance: OXCARBAZEPINE
     Dosage: UNK
     Route: 048
  4. THYMOPEPTIDE [Concomitant]
     Dosage: UNK
     Route: 048

REACTIONS (1)
  - Epilepsy [None]

NARRATIVE: CASE EVENT DATE: 201611
